FAERS Safety Report 9880277 (Version 2)
Quarter: 2014Q1

REPORT INFORMATION
  Report Type: Spontaneous
  Country: IN (occurrence: IN)
  Receive Date: 20140207
  Receipt Date: 20140211
  Transmission Date: 20141002
  Serious: Yes (Disabling)
  Sender: FDA-Public Use
  Company Number: IN-009507513-1402IND002324

PATIENT
  Age: 49 Year
  Sex: Male
  Weight: 106 kg

DRUGS (1)
  1. JANUMET [Suspect]
     Indication: MUSCULOSKELETAL STIFFNESS
     Dosage: STRENGTH AS 50/500MG, FREQUENCY AS 2/DAY
     Route: 048
     Dates: end: 20140122

REACTIONS (2)
  - Musculoskeletal stiffness [Not Recovered/Not Resolved]
  - Blood glucose increased [Unknown]
